FAERS Safety Report 14763195 (Version 1)
Quarter: 2018Q2

REPORT INFORMATION
  Report Type: Spontaneous
  Country: US (occurrence: US)
  Receive Date: 20180409
  Receipt Date: 20180409
  Transmission Date: 20180711
  Serious: Yes (Hospitalization)
  Sender: FDA-Public Use
  Company Number: None

PATIENT
  Age: 48 Year
  Sex: Male
  Weight: 109 kg

DRUGS (4)
  1. NYSTATIN ORAL SOLUTION [Concomitant]
     Dates: start: 20180109
  2. MYCOPHENOLATE MOFETIL. [Concomitant]
     Active Substance: MYCOPHENOLATE MOFETIL
     Dates: start: 20180109, end: 20180401
  3. TACROLIMUS. [Concomitant]
     Active Substance: TACROLIMUS
     Dates: start: 20180109
  4. ANTITHYMOCYTE GLOBULIN (RABBIT) [Suspect]
     Active Substance: LAPINE T-LYMPHOCYTE IMMUNE GLOBULIN
     Indication: TRANSPLANT REJECTION
     Dosage: ?          OTHER FREQUENCY:TOTAL OVER 6 DOSES;?
     Route: 041
     Dates: start: 20180315, end: 20180320

REACTIONS (5)
  - Arthralgia [None]
  - Joint range of motion decreased [None]
  - Swelling face [None]
  - Pain in jaw [None]
  - Serum sickness [None]

NARRATIVE: CASE EVENT DATE: 20180331
